FAERS Safety Report 6471527-6 (Version None)
Quarter: 2009Q4

REPORT INFORMATION
  Report Type: 
  Country: None (occurrence: None)
  Receive Date: 20091203
  Receipt Date: 20080509
  Transmission Date: 20100525
  Serious: Yes (Hospitalization)
  Sender: FDA-Public Use
  Company Number: US-ELI_LILLY_AND_COMPANY-US200802006536

PATIENT
  Age: 37 Year
  Sex: Female

DRUGS (5)
  1. CYMBALTA [Suspect]
     Dosage: 60 MG, UNK
     Dates: start: 20070101, end: 20070101
  2. CYMBALTA [Suspect]
     Dosage: 90 MG, UNK
     Dates: start: 20070101, end: 20070101
  3. CYMBALTA [Suspect]
     Dosage: 120 MG, UNK
     Dates: start: 20071101, end: 20071101
  4. CYMBALTA [Suspect]
     Dosage: 60 MG, UNK
     Dates: start: 20071101
  5. SYNTHROID [Concomitant]

REACTIONS (2)
  - CONSTIPATION [None]
  - INTESTINAL OBSTRUCTION [None]
